FAERS Safety Report 4635847-X (Version None)
Quarter: 2005Q2

REPORT INFORMATION
  Report Type: 
  Country: None (occurrence: None)
  Receive Date: 20050415
  Receipt Date: 20050316
  Transmission Date: 20051028
  Serious: Yes (Hospitalization)
  Sender: FDA-Public Use
  Company Number: 200510949FR

PATIENT
  Age: 48 Year
  Sex: Male

DRUGS (9)
  1. ARAVA [Suspect]
     Indication: RHEUMATOID ARTHRITIS
     Route: 048
     Dates: start: 20040915, end: 20050108
  2. ELISOR [Suspect]
     Indication: HYPERCHOLESTEROLAEMIA
     Route: 048
     Dates: start: 20010101, end: 20050108
  3. ISOPTIN [Concomitant]
  4. TRIATEC [Concomitant]
     Route: 048
  5. KARDEGIC [Concomitant]
     Route: 048
  6. LASILIX [Concomitant]
  7. SOLUDACTONE [Concomitant]
  8. CORTANCYL [Concomitant]
     Route: 048
  9. EFFERALGAN CODEINE [Concomitant]
     Route: 048

REACTIONS (5)
  - BLOOD CREATINE PHOSPHOKINASE INCREASED [None]
  - FATIGUE [None]
  - MUSCLE SPASMS [None]
  - MYALGIA [None]
  - RHABDOMYOLYSIS [None]
